FAERS Safety Report 24730905 (Version 2)
Quarter: 2024Q4

REPORT INFORMATION
  Report Type: Spontaneous
  Country: ES (occurrence: ES)
  Receive Date: 20241213
  Receipt Date: 20241220
  Transmission Date: 20250114
  Serious: Yes (Other)
  Sender: ACCORD
  Company Number: ES-MLMSERVICE-20241127-PI269972-00232-1

PATIENT
  Age: 53 Year
  Sex: Male

DRUGS (6)
  1. MYCOPHENOLIC ACID [Suspect]
     Active Substance: MYCOPHENOLIC ACID
     Indication: Autoimmune hepatitis
  2. PREDNISONE [Suspect]
     Active Substance: PREDNISONE
     Indication: Autoimmune hepatitis
  3. URSODIOL [Concomitant]
     Active Substance: URSODIOL
     Indication: Autoimmune hepatitis
  4. OMEPRAZOLE [Concomitant]
     Active Substance: OMEPRAZOLE
  5. CALCIUM\CHOLECALCIFEROL [Concomitant]
     Active Substance: CALCIUM\CHOLECALCIFEROL
  6. FLUVASTATIN [Concomitant]
     Active Substance: FLUVASTATIN SODIUM

REACTIONS (4)
  - Trichophytosis [Recovered/Resolved]
  - Dermatophytosis of nail [Recovered/Resolved]
  - Tinea cruris [Recovered/Resolved]
  - Tinea capitis [Recovered/Resolved]
